FAERS Safety Report 5465521-1 (Version None)
Quarter: 2007Q3

REPORT INFORMATION
  Report Type: 
  Country: None (occurrence: None)
  Receive Date: 20070924
  Receipt Date: 19970826
  Transmission Date: 20080115
  Serious: Yes (Hospitalization)
  Sender: FDA-Public Use
  Company Number: FR-PFIZER INC-2006119674

PATIENT
  Sex: Male

DRUGS (8)
  1. MEDROL [Suspect]
     Indication: BRAIN OEDEMA
     Dosage: DAILY DOSE:32MG
     Route: 048
  2. IRINOTECAN HCL [Suspect]
     Indication: RENAL CELL CARCINOMA STAGE UNSPECIFIED
     Dosage: DAILY DOSE:350MG/M*2
     Route: 042
     Dates: start: 19970820, end: 19970820
  3. CYTOTEC [Concomitant]
     Indication: GASTRIC ULCER
  4. DI-ANTALVIC [Concomitant]
     Indication: ABDOMINAL PAIN
  5. LOPERAMIDE HCL [Concomitant]
  6. SKENAN [Concomitant]
  7. TEGRETOL [Concomitant]
     Indication: CONVULSION
  8. TIORFAN [Concomitant]

REACTIONS (2)
  - LARGE INTESTINE PERFORATION [None]
  - PERITONITIS [None]
